FAERS Safety Report 12036881 (Version 1)
Quarter: 2016Q1

REPORT INFORMATION
  Report Type: Spontaneous
  Country: US (occurrence: US)
  Receive Date: 20160208
  Receipt Date: 20160208
  Transmission Date: 20160526
  Serious: Yes (Hospitalization)
  Sender: FDA-Public Use
  Company Number: US-BEH-2016058365

PATIENT
  Age: 65 Year
  Sex: Female
  Weight: 112 kg

DRUGS (28)
  1. LYRICA [Concomitant]
     Active Substance: PREGABALIN
  2. ATENOLOL. [Concomitant]
     Active Substance: ATENOLOL
  3. RESTORIL [Concomitant]
     Active Substance: TEMAZEPAM
  4. NAPROXEN. [Concomitant]
     Active Substance: NAPROXEN
  5. AMOXICILLIN. [Concomitant]
     Active Substance: AMOXICILLIN
  6. ASPIRIN EC [Concomitant]
     Active Substance: ASPIRIN
  7. CENTRUM SILVER [Concomitant]
     Active Substance: MINERALS\VITAMINS
  8. AMLACTIN [Concomitant]
     Active Substance: AMMONIUM LACTATE
  9. MIRALAX [Concomitant]
     Active Substance: POLYETHYLENE GLYCOL 3350
  10. LORATADINE. [Concomitant]
     Active Substance: LORATADINE
  11. METFORMIN [Concomitant]
     Active Substance: METFORMIN HYDROCHLORIDE
  12. CICLOPIROX. [Concomitant]
     Active Substance: CICLOPIROX
  13. KLONOPIN [Concomitant]
     Active Substance: CLONAZEPAM
  14. COLACE [Concomitant]
     Active Substance: DOCUSATE SODIUM
  15. EPIPEN [Concomitant]
     Active Substance: EPINEPHRINE
  16. LIPITOR [Concomitant]
     Active Substance: ATORVASTATIN CALCIUM
  17. LIDOCAINE/PRILOCAINE [Concomitant]
  18. ATIVAN [Concomitant]
     Active Substance: LORAZEPAM
  19. RANITIDINE [Concomitant]
     Active Substance: RANITIDINE\RANITIDINE HYDROCHLORIDE
  20. MAGNESIUM OXIDE. [Concomitant]
     Active Substance: MAGNESIUM OXIDE
  21. LAMICTAL [Concomitant]
     Active Substance: LAMOTRIGINE
  22. FISH OIL [Concomitant]
     Active Substance: FISH OIL
  23. LEVOXYL [Concomitant]
     Active Substance: LEVOTHYROXINE SODIUM
  24. ACIDOPHILUS [Concomitant]
     Active Substance: LACTOBACILLUS ACIDOPHILUS
  25. REQUIP [Concomitant]
     Active Substance: ROPINIROLE HYDROCHLORIDE
  26. HIZENTRA [Suspect]
     Active Substance: HUMAN IMMUNOGLOBULIN G
     Indication: IMMUNODEFICIENCY COMMON VARIABLE
     Route: 058
  27. VICODIN ES [Concomitant]
     Active Substance: ACETAMINOPHEN\HYDROCODONE BITARTRATE
  28. ACYCLOVIR. [Concomitant]
     Active Substance: ACYCLOVIR

REACTIONS (1)
  - Cardiac arrest [Unknown]

NARRATIVE: CASE EVENT DATE: 20160104
